FAERS Safety Report 12897003 (Version 2)
Quarter: 2016Q4

REPORT INFORMATION
  Report Type: Spontaneous
  Country: US (occurrence: US)
  Receive Date: 20161031
  Receipt Date: 20161208
  Transmission Date: 20170207
  Serious: Yes (Hospitalization, Other)
  Sender: FDA-Public Use
  Company Number: US-BAYER-2016-202920

PATIENT
  Age: 61 Year
  Sex: Female
  Weight: 57.14 kg

DRUGS (22)
  1. NIFEDIPINE. [Concomitant]
     Active Substance: NIFEDIPINE
     Dosage: UNK
  2. ACETAMINOPHEN. [Concomitant]
     Active Substance: ACETAMINOPHEN
     Dosage: UNK
  3. CELLCEPT [Concomitant]
     Active Substance: MYCOPHENOLATE MOFETIL\MYCOPHENOLATE MOFETIL HYDROCHLORIDE
     Dosage: UNK
  4. FLUTICASONE [Concomitant]
     Active Substance: FLUTICASONE\FLUTICASONE PROPIONATE
     Dosage: UNK
  5. VITAMIN D3 [Concomitant]
     Active Substance: CHOLECALCIFEROL
     Dosage: UNK
  6. AMBRISENTAN [Suspect]
     Active Substance: AMBRISENTAN
     Indication: PULMONARY ARTERIAL HYPERTENSION
     Dosage: 10 MG, QD
     Route: 065
     Dates: start: 20120828
  7. ADCIRCA [Concomitant]
     Active Substance: TADALAFIL
     Dosage: UNK
  8. ASPIRIN. [Concomitant]
     Active Substance: ASPIRIN
     Dosage: UNK
  9. CENTRUM [Concomitant]
     Active Substance: VITAMINS
     Dosage: UNK
  10. CETIRIZINE [Concomitant]
     Active Substance: CETIRIZINE HYDROCHLORIDE
     Dosage: UNK
  11. LEVOTHYROXINE. [Concomitant]
     Active Substance: LEVOTHYROXINE
  12. REMODULIN [Concomitant]
     Active Substance: TREPROSTINIL
     Dosage: UNK
  13. POTASSIUM CHLORIDE. [Concomitant]
     Active Substance: POTASSIUM CHLORIDE
     Dosage: UNK
  14. ADEMPAS [Suspect]
     Active Substance: RIOCIGUAT
     Indication: PRODUCT USED FOR UNKNOWN INDICATION
     Dosage: UNK
  15. DIGOXIN. [Concomitant]
     Active Substance: DIGOXIN
     Dosage: UNK
  16. IMATINIB [Concomitant]
     Active Substance: IMATINIB
     Dosage: UNK
  17. GLEEVEC [Concomitant]
     Active Substance: IMATINIB MESYLATE
     Dosage: UNK
  18. NEXIUM [Concomitant]
     Active Substance: ESOMEPRAZOLE MAGNESIUM
     Dosage: UNK
  19. CYANOCOBALAMIN. [Concomitant]
     Active Substance: CYANOCOBALAMIN
     Dosage: UNK
  20. FERROUS SULFATE. [Concomitant]
     Active Substance: FERROUS SULFATE
     Dosage: UNK
  21. SPIRONOLACTONE. [Concomitant]
     Active Substance: SPIRONOLACTONE
     Dosage: UNK
  22. SUCRALFATE. [Concomitant]
     Active Substance: SUCRALFATE
     Dosage: UNK

REACTIONS (6)
  - Renal impairment [None]
  - Fluid overload [None]
  - Anaemia [None]
  - Pulmonary arterial hypertension [Recovered/Resolved]
  - Oedema [None]
  - Right ventricular failure [None]

NARRATIVE: CASE EVENT DATE: 20161004
